FAERS Safety Report 16347079 (Version 1)
Quarter: 2019Q2

REPORT INFORMATION
  Report Type: Spontaneous
  Country: US (occurrence: US)
  Receive Date: 20190523
  Receipt Date: 20190523
  Transmission Date: 20190711
  Serious: No
  Sender: FDA-Public Use
  Company Number: US-TARO-2018TAR00386

PATIENT
  Sex: Male

DRUGS (3)
  1. PHENYTOIN CHEWABLE TABLETS USP 50 MG [Suspect]
     Active Substance: PHENYTOIN
     Indication: SEIZURE
     Dosage: 150 MG, 1X/DAY IN THE MORNING
     Route: 048
  2. PHENYTOIN SODIUM EXTENDED [Suspect]
     Active Substance: PHENYTOIN SODIUM
     Indication: SEIZURE
     Dosage: 200 MG, 1X/DAY IN THE EVENING
  3. RANEXA [Suspect]
     Active Substance: RANOLAZINE
     Indication: CARDIAC DISORDER
     Dosage: UNK
     Dates: start: 2016

REACTIONS (3)
  - Balance disorder [Not Recovered/Not Resolved]
  - General physical health deterioration [Not Recovered/Not Resolved]
  - Drug interaction [Not Recovered/Not Resolved]

NARRATIVE: CASE EVENT DATE: 2016
